FAERS Safety Report 6133193-9 (Version None)
Quarter: 2009Q1

REPORT INFORMATION
  Report Type: 
  Country: None (occurrence: None)
  Receive Date: 20090325
  Receipt Date: 20090325
  Transmission Date: 20090719
  Serious: Yes (Other)
  Sender: FDA-Public Use
  Company Number: None

PATIENT
  Age: 21 Month
  Sex: Female
  Weight: 11.7935 kg

DRUGS (1)
  1. AZITHROMYCIN [Suspect]
     Indication: PNEUMONIA
     Dosage: 120MG ONCE PO 60MG DAILY X 4 DAYS PO
     Route: 048
     Dates: start: 20090305, end: 20090309

REACTIONS (3)
  - AGITATION [None]
  - IRRITABILITY [None]
  - NERVOUS SYSTEM DISORDER [None]
